FAERS Safety Report 4352988-5 (Version None)
Quarter: 2004Q2

REPORT INFORMATION
  Report Type: 
  Country: None (occurrence: None)
  Receive Date: 20040430
  Receipt Date: 20040202
  Transmission Date: 20050107
  Serious: No
  Sender: FDA-Public Use
  Company Number: 204506

PATIENT
  Age: 55 Year
  Sex: Female
  Weight: 68 kg

DRUGS (11)
  1. XOLAIR [Suspect]
     Indication: ASTHMA
     Dosage: 150 MG, Q4W, SUBCUTANEOUS
     Route: 058
     Dates: start: 20031218
  2. ADVAIR DISKUS [Concomitant]
  3. RHINOCORT AQUA (BUDESONIDE) [Concomitant]
  4. SINGULAIR [Concomitant]
  5. PREMARIN [Concomitant]
  6. ZOLOFT [Concomitant]
  7. XOPENEX [Concomitant]
  8. ASPIRIN [Concomitant]
  9. PULMICORT [Concomitant]
  10. LEVAQUIN [Concomitant]
  11. PENTOXIFYLLINE [Concomitant]

REACTIONS (2)
  - BRONCHITIS [None]
  - WHEEZING [None]
